FAERS Safety Report 24234570 (Version 2)
Quarter: 2024Q4

REPORT INFORMATION
  Report Type: Spontaneous
  Country: US (occurrence: US)
  Receive Date: 20240821
  Receipt Date: 20241127
  Transmission Date: 20250115
  Serious: No
  Sender: PFIZER
  Company Number: US-PFIZER INC-PV202400108783

PATIENT
  Age: 80 Year
  Sex: Male

DRUGS (2)
  1. TUKYSA [Suspect]
     Active Substance: TUCATINIB
     Dosage: TUKYSA 150 MG 1 TABLET TWICE A DAY. TUKYSA 50 MG 2 TABLETS TWICE A DAY
  2. TUKYSA [Suspect]
     Active Substance: TUCATINIB
     Dosage: TAKE 250 MG PO BID
     Route: 048

REACTIONS (2)
  - Blood pressure abnormal [Unknown]
  - Off label use [Unknown]
